FAERS Safety Report 7570739-8 (Version None)
Quarter: 2011Q2

REPORT INFORMATION
  Report Type: 
  Country: None (occurrence: None)
  Receive Date: 20110624
  Receipt Date: 20110525
  Transmission Date: 20111010
  Serious: No
  Sender: FDA-Public Use
  Company Number: US-ALLERGAN-1106745US

PATIENT
  Age: 55 Year
  Sex: Female

DRUGS (11)
  1. SYNTHROID [Concomitant]
     Dosage: 125 A?G, UNK
  2. ASTHALIN                           /00139501/ [Concomitant]
  3. RESTASIS [Concomitant]
  4. FRESHKOTE [Concomitant]
  5. CLODERM                            /00212501/ [Concomitant]
  6. LATISSE [Suspect]
     Indication: GROWTH OF EYELASHES
     Dosage: UNK
     Route: 061
     Dates: start: 20110120, end: 20110127
  7. HYZAAR                             /01284801/ [Concomitant]
  8. SINGULAIR [Concomitant]
  9. OPTIVE SENSITIVE [Concomitant]
  10. CLARITIN                           /00413701/ [Concomitant]
  11. HYDROCHLOROTHIAZIDE [Concomitant]
     Dosage: UNK

REACTIONS (3)
  - RASH [None]
  - SKIN EXFOLIATION [None]
  - EYELID EXFOLIATION [None]
